FAERS Safety Report 19373417 (Version 1)
Quarter: 2021Q2

REPORT INFORMATION
  Report Type: Report from Study
  Country: FR (occurrence: FR)
  Receive Date: 20210603
  Receipt Date: 20210603
  Transmission Date: 20210717
  Serious: Yes (Death)
  Sender: FDA-Public Use
  Company Number: FR-MYLANLABS-2021M1031932

PATIENT

DRUGS (4)
  1. DOCETAXEL. [Suspect]
     Active Substance: DOCETAXEL
     Indication: SQUAMOUS CELL CARCINOMA OF HEAD AND NECK
     Dosage: AS A 1H INFUSION ON DAY 1
     Route: 042
  2. CETUXIMAB. [Suspect]
     Active Substance: CETUXIMAB
     Indication: SQUAMOUS CELL CARCINOMA OF HEAD AND NECK
     Dosage: INFUSION AT 5 MG/MINUTE MAXIMUM SPEED ON DAY 1 OF CYCLE 1
     Route: 042
  3. CISPLATIN. [Suspect]
     Active Substance: CISPLATIN
     Indication: SQUAMOUS CELL CARCINOMA OF HEAD AND NECK
     Dosage: AS A 1H INFUSION ON DAY 1
     Route: 042
  4. CETUXIMAB. [Suspect]
     Active Substance: CETUXIMAB
     Dosage: INFUSION AT 10 MG/MINUTE MAXIMUM SPEED ON DAYS 1, 8 AND 15 OF EACH TREATMENT CYCLE
     Route: 042

REACTIONS (3)
  - Blood creatinine increased [Fatal]
  - Septic shock [Fatal]
  - Dyspnoea [Fatal]
